FAERS Safety Report 4344765-6 (Version None)
Quarter: 2004Q2

REPORT INFORMATION
  Report Type: 
  Country: None (occurrence: None)
  Receive Date: 20040423
  Receipt Date: 20020826
  Transmission Date: 20050107
  Serious: Yes (Other)
  Sender: FDA-Public Use
  Company Number: US-GLAXOSMITHKLINE-A0379127A

PATIENT
  Age: 86 Year
  Sex: Male
  Weight: 75.9 kg

DRUGS (3)
  1. LEUKERAN [Suspect]
     Dosage: 70MG UNKNOWN
     Route: 048
     Dates: start: 20020714, end: 20020817
  2. DIGOXIN [Concomitant]
     Indication: ILL-DEFINED DISORDER
     Route: 065
  3. ASPIRIN [Concomitant]
     Indication: ILL-DEFINED DISORDER
     Route: 065

REACTIONS (4)
  - NAUSEA [None]
  - RASH [None]
  - TREMOR [None]
  - VOMITING [None]
